FAERS Safety Report 16912615 (Version 3)
Quarter: 2020Q1

REPORT INFORMATION
  Report Type: Report from Study
  Country: US (occurrence: US)
  Receive Date: 20191014
  Receipt Date: 20200316
  Transmission Date: 20200409
  Serious: Yes (Other)
  Sender: FDA-Public Use
  Company Number: US-AMGEN-USASL2019164113

PATIENT
  Age: 70 Year
  Sex: Female

DRUGS (4)
  1. PROLIA [Suspect]
     Active Substance: DENOSUMAB
     Indication: OSTEOPENIA
     Dosage: UNK
     Route: 065
     Dates: start: 201803, end: 20190926
  2. VIT D [Concomitant]
     Active Substance: VITAMIN D NOS
     Dosage: 500 INTERNATIONAL UNIT
  3. CALCIUM [Concomitant]
     Active Substance: CALCIUM
     Dosage: 1200 MILLIGRAM
  4. XARELTO [Concomitant]
     Active Substance: RIVAROXABAN
     Indication: ATRIAL FIBRILLATION

REACTIONS (7)
  - Spinal compression fracture [Unknown]
  - Back pain [Unknown]
  - Rib fracture [Unknown]
  - Fall [Unknown]
  - Off label use [Unknown]
  - Influenza [Unknown]
  - Foot fracture [Unknown]

NARRATIVE: CASE EVENT DATE: 2019
